FAERS Safety Report 9665369 (Version 3)
Quarter: 2013Q4

REPORT INFORMATION
  Report Type: Report from Study
  Country: CA (occurrence: CA)
  Receive Date: 20131104
  Receipt Date: 20131113
  Transmission Date: 20140711
  Serious: Yes (Life-Threatening, Hospitalization)
  Sender: FDA-Public Use
  Company Number: CA-JNJFOC-20131007777

PATIENT
  Age: 37 Year
  Sex: Female
  Weight: 134.27 kg

DRUGS (2)
  1. REMICADE [Suspect]
     Indication: CROHN^S DISEASE
     Route: 042
     Dates: start: 201201, end: 20131104
  2. IMURAN [Concomitant]
     Route: 048

REACTIONS (5)
  - Local swelling [Unknown]
  - Thrombosis [Unknown]
  - Local swelling [Unknown]
  - Pain in extremity [Unknown]
  - Neck pain [Unknown]
